FAERS Safety Report 23848060 (Version 1)
Quarter: 2024Q2

REPORT INFORMATION
  Report Type: Report from Study
  Country: US (occurrence: US)
  Receive Date: 20240513
  Receipt Date: 20240513
  Transmission Date: 20240716
  Serious: Yes (Death)
  Sender: FDA-Public Use
  Company Number: US-BAYER-2024A069944

PATIENT
  Age: 76 Year
  Sex: Female
  Weight: 116.55 kg

DRUGS (23)
  1. ADEMPAS [Suspect]
     Active Substance: RIOCIGUAT
     Indication: Pulmonary arterial hypertension
     Dosage: UNK
     Dates: start: 20230803
  2. ADEMPAS [Suspect]
     Active Substance: RIOCIGUAT
     Indication: Pulmonary arterial hypertension
     Dosage: 2.5 MG, TID
     Route: 048
  3. CYMBALTA [Concomitant]
     Active Substance: DULOXETINE HYDROCHLORIDE
  4. LEVOTHYROXINE [Concomitant]
     Active Substance: LEVOTHYROXINE\LEVOTHYROXINE SODIUM
  5. TUMS [Concomitant]
     Active Substance: CALCIUM CARBONATE
  6. ATORVASTATIN CALCIUM [Concomitant]
     Active Substance: ATORVASTATIN CALCIUM
  7. XARELTO [Concomitant]
     Active Substance: RIVAROXABAN
  8. TYLENOL EXTRA STRENGTH [Concomitant]
     Active Substance: ACETAMINOPHEN
  9. FOLIC ACID [Concomitant]
     Active Substance: FOLIC ACID
  10. ALLOPURINOL [Concomitant]
     Active Substance: ALLOPURINOL
  11. PREDNISONE [Concomitant]
     Active Substance: PREDNISONE
  12. SOLIFENACIN SUCCINATE [Concomitant]
     Active Substance: SOLIFENACIN SUCCINATE
  13. NEXIUM [Concomitant]
     Active Substance: ESOMEPRAZOLE MAGNESIUM
  14. POTASSIUM CITRATE [Concomitant]
     Active Substance: POTASSIUM CITRATE
  15. SPIRONOLACTONE [Concomitant]
     Active Substance: SPIRONOLACTONE
  16. LIDOCAINE [Concomitant]
     Active Substance: LIDOCAINE
  17. OXYGEN [Concomitant]
     Active Substance: OXYGEN
  18. METAMUCIL [Concomitant]
     Active Substance: PLANTAGO SEED
  19. VOLTAREN [Concomitant]
     Active Substance: DICLOFENAC SODIUM
  20. FUROSEMIDE [Concomitant]
     Active Substance: FUROSEMIDE
  21. MAGNESIUM [Concomitant]
     Active Substance: MAGNESIUM
  22. MYRBETRIQ [Concomitant]
     Active Substance: MIRABEGRON
  23. PYRIDOXINE [Concomitant]
     Active Substance: PYRIDOXINE

REACTIONS (1)
  - Death [Fatal]

NARRATIVE: CASE EVENT DATE: 20240509
